FAERS Safety Report 17848044 (Version 2)
Quarter: 2020Q2

REPORT INFORMATION
  Report Type: Spontaneous
  Country: US (occurrence: US)
  Receive Date: 20200601
  Receipt Date: 20200615
  Transmission Date: 20200714
  Serious: Yes (Death, Other)
  Sender: FDA-Public Use
  Company Number: US-GILEAD-2020-0469503

PATIENT
  Age: 45 Year
  Sex: Male
  Weight: 145 kg

DRUGS (38)
  1. DOXYCYCLINE. [Concomitant]
     Active Substance: DOXYCYCLINE
  2. INSULIN GLARGINE [Concomitant]
     Active Substance: INSULIN GLARGINE
  3. FUROSEMIDE. [Concomitant]
     Active Substance: FUROSEMIDE
  4. METOPROLOL. [Concomitant]
     Active Substance: METOPROLOL
  5. PROPOFOL. [Concomitant]
     Active Substance: PROPOFOL
  6. CALCIUM GLUCONATE. [Concomitant]
     Active Substance: CALCIUM GLUCONATE
  7. DEXMEDETOMIDINE. [Concomitant]
     Active Substance: DEXMEDETOMIDINE
  8. ENOXAPARIN [Concomitant]
     Active Substance: ENOXAPARIN
  9. FENTANYL. [Concomitant]
     Active Substance: FENTANYL
  10. WARFARIN [Concomitant]
     Active Substance: WARFARIN
  11. ACETAMINOPHEN. [Concomitant]
     Active Substance: ACETAMINOPHEN
  12. AMIODARONE [Concomitant]
     Active Substance: AMIODARONE
  13. CHOLECALCIFEROL [Concomitant]
     Active Substance: CHOLECALCIFEROL
  14. CISATRACURIUM. [Concomitant]
     Active Substance: CISATRACURIUM
  15. ALBUTEROL [SALBUTAMOL] [Concomitant]
     Active Substance: ALBUTEROL
  16. MEROPENEM. [Concomitant]
     Active Substance: MEROPENEM
  17. METFORMIN [Concomitant]
     Active Substance: METFORMIN HYDROCHLORIDE
  18. METHYLPREDNISOLONE. [Concomitant]
     Active Substance: METHYLPREDNISOLONE
  19. NOREPINEPHRINE. [Concomitant]
     Active Substance: NOREPINEPHRINE
  20. PHENYLEPHRINE [Concomitant]
     Active Substance: PHENYLEPHRINE HYDROCHLORIDE
  21. REMDESIVIR. [Suspect]
     Active Substance: REMDESIVIR
     Indication: COVID-19
     Dosage: 200 MG, ONCE
     Route: 042
     Dates: start: 20200520, end: 20200520
  22. REMDESIVIR. [Suspect]
     Active Substance: REMDESIVIR
     Dosage: 100 MG, QD
     Route: 042
     Dates: start: 20200521, end: 20200526
  23. NORCO [Concomitant]
     Active Substance: ACETAMINOPHEN\HYDROCODONE BITARTRATE
  24. AMLODIPINE [Concomitant]
     Active Substance: AMLODIPINE BESYLATE
  25. INSULIN LISPRO [Concomitant]
     Active Substance: INSULIN LISPRO
  26. NITROGLYCERIN. [Concomitant]
     Active Substance: NITROGLYCERIN
  27. NORTRIPTYLINE [Concomitant]
     Active Substance: NORTRIPTYLINE
  28. ASPIRIN [ACETYLSALICYLIC ACID] [Concomitant]
     Active Substance: ASPIRIN
  29. ATORVASTATIN [Concomitant]
     Active Substance: ATORVASTATIN
  30. CEFTRIAXONE. [Concomitant]
     Active Substance: CEFTRIAXONE
  31. CHLORHEXIDINE GLUCONATE. [Concomitant]
     Active Substance: CHLORHEXIDINE GLUCONATE
  32. DIGOXIN. [Concomitant]
     Active Substance: DIGOXIN
  33. TOCILIZUMAB. [Concomitant]
     Active Substance: TOCILIZUMAB
  34. HEPARIN [Concomitant]
     Active Substance: HEPARIN SODIUM
  35. FAMOTIDINE. [Concomitant]
     Active Substance: FAMOTIDINE
  36. CALCIUM CARBONATE. [Concomitant]
     Active Substance: CALCIUM CARBONATE
  37. LOSARTAN. [Concomitant]
     Active Substance: LOSARTAN
  38. MIDAZOLAM. [Concomitant]
     Active Substance: MIDAZOLAM

REACTIONS (5)
  - Cardiac arrest [Fatal]
  - Glomerular filtration rate decreased [Not Recovered/Not Resolved]
  - Respiratory failure [Unknown]
  - Blood creatinine increased [Not Recovered/Not Resolved]
  - Liver function test increased [Not Recovered/Not Resolved]

NARRATIVE: CASE EVENT DATE: 20200523
